FAERS Safety Report 4958265-3 (Version None)
Quarter: 2006Q1

REPORT INFORMATION
  Report Type: 
  Country: None (occurrence: None)
  Receive Date: 20060330
  Receipt Date: 20050713
  Transmission Date: 20060701
  Serious: Yes (Hospitalization)
  Sender: FDA-Public Use
  Company Number: PHBS2005JP10094

PATIENT
  Age: 68 Year
  Sex: Male
  Weight: 58 kg

DRUGS (5)
  1. TATSUPLAMIN [Suspect]
     Route: 048
  2. LAMISIL [Suspect]
     Indication: NAIL TINEA
  3. MAINTOWA [Concomitant]
     Dates: start: 20030101
  4. NISUTADIL [Concomitant]
     Dates: start: 20000101
  5. SAYMOTIN [Concomitant]
     Dates: start: 19950101

REACTIONS (9)
  - ALANINE AMINOTRANSFERASE INCREASED [None]
  - ASPARTATE AMINOTRANSFERASE INCREASED [None]
  - ASTHENIA [None]
  - BLOOD BILIRUBIN INCREASED [None]
  - CHEST DISCOMFORT [None]
  - CHROMATURIA [None]
  - HEPATITIS [None]
  - HEPATITIS A POSITIVE [None]
  - LIVER DISORDER [None]
